FAERS Safety Report 4832006-2 (Version None)
Quarter: 2005Q4

REPORT INFORMATION
  Report Type: 
  Country: None (occurrence: None)
  Receive Date: 20051116
  Receipt Date: 20051107
  Transmission Date: 20060501
  Serious: Yes (Hospitalization)
  Sender: FDA-Public Use
  Company Number: GXKR2005GB01937

PATIENT
  Age: 41 Year
  Sex: Female

DRUGS (3)
  1. METRONIDAZOLE [Suspect]
     Indication: HELICOBACTER INFECTION
     Dosage: 400 MG, BID, ORAL
     Route: 048
     Dates: start: 20051021, end: 20051024
  2. AMOXICILLIN [Suspect]
     Indication: HELICOBACTER INFECTION
     Dosage: 1 G, BID, ORAL
     Route: 048
     Dates: start: 20051021, end: 20051024
  3. LANSOPRAZOLE [Suspect]
     Indication: HELICOBACTER INFECTION
     Dosage: 30 MG, ORAL
     Route: 048
     Dates: start: 20051021

REACTIONS (3)
  - ABDOMINAL PAIN UPPER [None]
  - JAUNDICE [None]
  - VOMITING [None]
